FAERS Safety Report 6102682-5 (Version None)
Quarter: 2009Q1

REPORT INFORMATION
  Report Type: 
  Country: None (occurrence: None)
  Receive Date: 20090304
  Receipt Date: 20090112
  Transmission Date: 20090719
  Serious: No
  Sender: FDA-Public Use
  Company Number: A0761899A

PATIENT
  Age: 74 Year
  Sex: Female

DRUGS (4)
  1. REQUIP [Suspect]
     Indication: RESTLESS LEGS SYNDROME
     Route: 048
     Dates: start: 20081201, end: 20081224
  2. PLAVIX [Concomitant]
  3. LIPITOR [Concomitant]
  4. OXYBUTYNIN CHLORIDE [Concomitant]

REACTIONS (2)
  - DIARRHOEA [None]
  - THERAPEUTIC RESPONSE UNEXPECTED [None]
